FAERS Safety Report 6681069-0 (Version None)
Quarter: 2010Q2

REPORT INFORMATION
  Report Type: 
  Country: None (occurrence: None)
  Receive Date: 20100412
  Receipt Date: 20100326
  Transmission Date: 20101027
  Serious: Yes (Death, Other)
  Sender: FDA-Public Use
  Company Number: 2010AL001933

PATIENT
  Age: 36 Year
  Sex: Male

DRUGS (12)
  1. DIAZEPAM TAB [Suspect]
  2. CITALOPRAM HYDROBROMIDE [Concomitant]
  3. CODEINE [Concomitant]
  4. CAFFEINE [Concomitant]
  5. IBUPROFEN [Concomitant]
  6. PARACETAMOL [Concomitant]
  7. DICLOFENAC [Concomitant]
  8. ACETAMINOPHEN AND CODEINE PHOSPHATE [Concomitant]
  9. LACTULOSE [Concomitant]
  10. HEROIN [Concomitant]
  11. CLOZARIL [Concomitant]
  12. SULPIRIDE [Concomitant]

REACTIONS (18)
  - ADHESION [None]
  - ARTERIOSCLEROSIS CORONARY ARTERY [None]
  - CARDIOVASCULAR DISORDER [None]
  - CONJUNCTIVAL HYPERAEMIA [None]
  - CONTUSION [None]
  - DEPRESSED LEVEL OF CONSCIOUSNESS [None]
  - DRUG ABUSE [None]
  - DRUG TOXICITY [None]
  - EPISTAXIS [None]
  - EXCORIATION [None]
  - LIVIDITY [None]
  - MOUTH HAEMORRHAGE [None]
  - MULTIPLE INJURIES [None]
  - NEEDLE TRACK MARKS [None]
  - PETECHIAE [None]
  - PULMONARY OEDEMA [None]
  - RESPIRATORY DEPRESSION [None]
  - SCAR [None]
